FAERS Safety Report 8112653-5 (Version None)
Quarter: 2012Q1

REPORT INFORMATION
  Report Type: 
  Country: None (occurrence: None)
  Receive Date: 20120203
  Receipt Date: 20120202
  Transmission Date: 20120608
  Serious: Yes (Hospitalization)
  Sender: FDA-Public Use
  Company Number: IT-BAYER-2012-010933

PATIENT
  Age: 91 Year
  Sex: Male

DRUGS (12)
  1. CEFTRIAXONE [Suspect]
     Dosage: DAILY DOSE 2 G
     Route: 042
     Dates: start: 20110911, end: 20110916
  2. FINASTERIDE [Concomitant]
  3. CIPROFLOXACIN HYDROCHLORIDE [Suspect]
     Indication: ESCHERICHIA SEPSIS
     Dosage: DAILY DOSE 750 MG
     Route: 048
     Dates: start: 20110908, end: 20110910
  4. PIPERACILLIN AND TAZOBACTAM [Suspect]
     Indication: ESCHERICHIA SEPSIS
     Dosage: DAILY DOSE 13.5 G
     Route: 042
     Dates: start: 20110830, end: 20110907
  5. TARGOCID [Suspect]
     Indication: ESCHERICHIA SEPSIS
     Dosage: DAILY DOSE 200 MG
     Route: 042
     Dates: start: 20110915, end: 20110923
  6. IMIPENEM AND CILASTATIN SODIUM [Suspect]
     Indication: ESCHERICHIA SEPSIS
     Dosage: DAILY DOSE 1500 MG
     Route: 042
     Dates: start: 20110916, end: 20110923
  7. ALTIAZEM [Concomitant]
  8. NEXIUM [Concomitant]
  9. MADOPAR [Concomitant]
  10. CEFTRIAXONE [Suspect]
     Indication: CHOLECYSTITIS
     Dosage: DAILY DOSE 1 G
     Route: 042
     Dates: start: 20110801, end: 20110817
  11. LEVOFLOXACIN [Suspect]
     Indication: ESCHERICHIA SEPSIS
     Dosage: DAILY DOSE 500 MG
     Route: 042
     Dates: start: 20110911, end: 20110916
  12. CLONAZEPAM [Concomitant]

REACTIONS (1)
  - CLOSTRIDIUM DIFFICILE COLITIS [None]
